FAERS Safety Report 15340144 (Version 2)
Quarter: 2019Q2

REPORT INFORMATION
  Report Type: Spontaneous
  Country: CA (occurrence: CA)
  Receive Date: 20180831
  Receipt Date: 20190425
  Transmission Date: 20190711
  Serious: Yes (Hospitalization)
  Sender: FDA-Public Use
  Company Number: CA-TEVA-2018-CA-950324

PATIENT
  Age: 13 Year
  Sex: Male

DRUGS (2)
  1. ISOTRETINOIN. [Suspect]
     Active Substance: ISOTRETINOIN
     Indication: ACNE CONGLOBATA
     Route: 048
  2. DOXYCYCLINE. [Suspect]
     Active Substance: DOXYCYCLINE
     Indication: ACNE CONGLOBATA
     Route: 048

REACTIONS (1)
  - Neutrophilic dermatosis [Recovering/Resolving]
